FAERS Safety Report 5443050-9 (Version None)
Quarter: 2007Q3

REPORT INFORMATION
  Report Type: 
  Country: None (occurrence: None)
  Receive Date: 20070905
  Receipt Date: 20070829
  Transmission Date: 20080115
  Serious: Yes (Disabling)
  Sender: FDA-Public Use
  Company Number: PHFR2007GB02558

PATIENT
  Age: 47 Year
  Sex: Male
  Weight: 75 kg

DRUGS (2)
  1. NEORAL [Suspect]
     Dosage: 150 MG, BID
     Route: 048
     Dates: start: 20020701, end: 20070514
  2. ENBREL [Suspect]
     Indication: PSORIASIS
     Dosage: 25 MG, QW
     Route: 058
     Dates: start: 20070423, end: 20070601

REACTIONS (1)
  - LICHENOID KERATOSIS [None]
